FAERS Safety Report 8307201-0 (Version None)
Quarter: 2012Q2

REPORT INFORMATION
  Report Type: 
  Country: None (occurrence: None)
  Receive Date: 20120424
  Receipt Date: 20120418
  Transmission Date: 20120825
  Serious: No
  Sender: FDA-Public Use
  Company Number: US-PFIZER INC-2012097452

PATIENT
  Sex: Male

DRUGS (7)
  1. CIALIS [Concomitant]
     Dosage: UNK
     Dates: end: 20120401
  2. VIAGRA [Suspect]
     Dosage: UNK
     Route: 048
  3. BENADRYL [Interacting]
     Indication: HYPERSENSITIVITY
     Dosage: UNK
  4. ASPIRIN [Concomitant]
     Dosage: 81 MG, UNK
  5. VIAGRA [Interacting]
     Dosage: 25 MG, UNK
     Route: 048
  6. LORAZEPAM [Interacting]
     Indication: SLEEP DISORDER
     Dosage: UNK
  7. XANAX [Interacting]
     Indication: SLEEP DISORDER
     Dosage: UNK

REACTIONS (2)
  - DRUG INEFFECTIVE [None]
  - DRUG INTERACTION [None]
